FAERS Safety Report 24170719 (Version 4)
Quarter: 2024Q3

REPORT INFORMATION
  Report Type: Report from Study
  Country: BR (occurrence: BR)
  Receive Date: 20240805
  Receipt Date: 20240905
  Transmission Date: 20241017
  Serious: Yes (Death, Hospitalization, Other)
  Sender: AKCEA THERAPEUTICS
  Company Number: BR-AKCEA THERAPEUTICS, INC.-2024IS006146

PATIENT

DRUGS (6)
  1. TEGSEDI [Suspect]
     Active Substance: INOTERSEN SODIUM
     Indication: Hereditary neuropathic amyloidosis
     Dosage: 284 MILLIGRAM, QW
     Route: 058
     Dates: start: 20240509, end: 20240725
  2. VASTAREL [Concomitant]
     Active Substance: TRIMETAZIDINE DIHYDROCHLORIDE
     Indication: Product used for unknown indication
     Dosage: 70 MILLIGRAM
     Route: 065
  3. VASTAREL [Concomitant]
     Active Substance: TRIMETAZIDINE DIHYDROCHLORIDE
     Dosage: 35 MILLIGRAM
     Route: 065
  4. METOPROLOL SUCCINATE [Concomitant]
     Active Substance: METOPROLOL SUCCINATE
     Indication: Product used for unknown indication
     Dosage: 25 MILLIGRAM
     Route: 065
  5. INSULIN NOS [Concomitant]
     Active Substance: INSULIN NOS
     Indication: Product used for unknown indication
     Dosage: 10 INTERNATIONAL UNIT
     Route: 065
  6. DOBUTAMINE [Concomitant]
     Active Substance: DOBUTAMINE HYDROCHLORIDE
     Indication: Product used for unknown indication
     Route: 065

REACTIONS (26)
  - Pulmonary sepsis [Fatal]
  - Asthenia [Not Recovered/Not Resolved]
  - Fatigue [Not Recovered/Not Resolved]
  - Mouth haemorrhage [Not Recovered/Not Resolved]
  - Pneumonia [Recovering/Resolving]
  - Lung opacity [Unknown]
  - Lung consolidation [Unknown]
  - Gingival bleeding [Recovering/Resolving]
  - Hypotension [Recovering/Resolving]
  - Nosocomial infection [Not Recovered/Not Resolved]
  - Cough [Unknown]
  - Snoring [Unknown]
  - Dyspnoea [Not Recovered/Not Resolved]
  - Somnolence [Unknown]
  - Decubitus ulcer [Not Recovered/Not Resolved]
  - Feeding disorder [Unknown]
  - Choking [Unknown]
  - Condition aggravated [Unknown]
  - Cardiac disorder [Unknown]
  - Cardiovascular disorder [Unknown]
  - Pancytopenia [Unknown]
  - Oxygen saturation decreased [Recovering/Resolving]
  - Inflammation of wound [Unknown]
  - Dysphagia [Unknown]
  - Sluggishness [Unknown]
  - Platelet count decreased [Unknown]

NARRATIVE: CASE EVENT DATE: 20240726
